FAERS Safety Report 17763704 (Version 1)
Quarter: 2020Q2

REPORT INFORMATION
  Report Type: Spontaneous
  Country: ES (occurrence: ES)
  Receive Date: 20200510
  Receipt Date: 20200510
  Transmission Date: 20200714
  Serious: Yes (Life-Threatening, Hospitalization, Other)
  Sender: FDA-Public Use
  Company Number: ES-CADILA HEALTHCARE LIMITED-ES-ZYDUS-027226

PATIENT

DRUGS (4)
  1. LEVOFLOXACIN. [Suspect]
     Active Substance: LEVOFLOXACIN
     Indication: STENOTROPHOMONAS INFECTION
     Dosage: 8.5 MILLIGRAM/KILOGRAM,(INTERVAL :12 HOURS)
  2. SULFAMETHOXAZOLE,TRIMETHOPRIME [Concomitant]
     Indication: STENOTROPHOMONAS INFECTION
     Dosage: 5 MILLIGRAM/KILOGRAM,(INTERVAL :1 DAYS)
  3. MEROPENEM. [Concomitant]
     Active Substance: MEROPENEM
     Indication: KLEBSIELLA INFECTION
  4. DOPAMINE [Concomitant]
     Active Substance: DOPAMINE HYDROCHLORIDE
     Indication: SEPTIC SHOCK
     Dosage: 10,(INTERVAL :1 MINUTES)

REACTIONS (3)
  - Shock [Recovered/Resolved]
  - Distributive shock [Recovered/Resolved]
  - Off label use [Unknown]
